FAERS Safety Report 5858408-3 (Version None)
Quarter: 2008Q3

REPORT INFORMATION
  Report Type: 
  Country: None (occurrence: None)
  Receive Date: 20080826
  Receipt Date: 20080815
  Transmission Date: 20090109
  Serious: Yes (Life-Threatening)
  Sender: FDA-Public Use
  Company Number: CH-ROCHE-581716

PATIENT
  Age: 29 Year
  Sex: Male

DRUGS (5)
  1. PEGASYS [Suspect]
     Route: 058
     Dates: start: 20071006, end: 20080329
  2. COPEGUS [Interacting]
     Route: 065
     Dates: start: 20071006, end: 20080329
  3. CLOZAPINE [Interacting]
     Dosage: CLOZAPINE 500 MG DAILY (200-0-300)
     Route: 048
     Dates: start: 20060701, end: 20080406
  4. REMERON [Interacting]
     Route: 048
     Dates: start: 20071119
  5. TEMESTA [Concomitant]
     Route: 048
     Dates: start: 20060801

REACTIONS (2)
  - AGRANULOCYTOSIS [None]
  - DRUG INTERACTION [None]
